FAERS Safety Report 15933554 (Version 3)
Quarter: 2019Q1

REPORT INFORMATION
  Report Type: Spontaneous
  Country: US (occurrence: US)
  Receive Date: 20190207
  Receipt Date: 20190214
  Transmission Date: 20190417
  Serious: No
  Sender: FDA-Public Use
  Company Number: US-BIOMARINAP-US-2019-121839

PATIENT
  Age: 39 Year
  Sex: Female
  Weight: 130.7 kg

DRUGS (3)
  1. ZANTAC [Concomitant]
     Active Substance: RANITIDINE HYDROCHLORIDE
     Indication: PREMEDICATION
     Dosage: 150 MILLIGRAM, QD
     Dates: start: 20190122
  2. PALYNZIQ [Suspect]
     Active Substance: PEGVALIASE-PQPZ
     Indication: PHENYLKETONURIA
     Dosage: 2.5 MILLIGRAM, QW
     Route: 058
     Dates: start: 20190122
  3. ALLEGRA [Concomitant]
     Active Substance: FEXOFENADINE HYDROCHLORIDE
     Indication: PREMEDICATION
     Dosage: 180 MILLIGRAM
     Dates: start: 20190122

REACTIONS (7)
  - Arthralgia [Recovering/Resolving]
  - Chills [Recovered/Resolved]
  - Rash [Recovering/Resolving]
  - Headache [Recovered/Resolved]
  - Injection site erythema [Recovering/Resolving]
  - Injection site pain [Recovering/Resolving]
  - Pyrexia [Recovered/Resolved]

NARRATIVE: CASE EVENT DATE: 20190128
